FAERS Safety Report 11792761 (Version 1)
Quarter: 2015Q4

REPORT INFORMATION
  Report Type: Spontaneous
  Country: US (occurrence: None)
  Receive Date: 20151130
  Receipt Date: 20151130
  Transmission Date: 20160305
  Serious: Yes (Other)
  Sender: FDA-Public Use
  Company Number: 2015US-106366

PATIENT
  Age: 43 Year
  Sex: Female

DRUGS (7)
  1. TOPIRAMATE (TOPIRAMATE) UNKNOWN [Suspect]
     Active Substance: TOPIRAMATE
     Indication: NEURALGIA
     Dosage: LONG TERM USE OF TOPIRAMATE, UNKNOWN
  2. LORAZEPAM. [Concomitant]
     Active Substance: LORAZEPAM
  3. FLUTICASONE [Concomitant]
     Active Substance: FLUTICASONE\FLUTICASONE PROPIONATE
  4. OXYCODONE (OXYCODONE) [Concomitant]
     Active Substance: OXYCODONE
  5. FAMOTIDINE. [Concomitant]
     Active Substance: FAMOTIDINE
  6. TIZANIDINE. [Concomitant]
     Active Substance: TIZANIDINE
  7. OMEPRAZOLE. [Concomitant]
     Active Substance: OMEPRAZOLE

REACTIONS (3)
  - Metabolic acidosis [None]
  - Respiratory alkalosis [None]
  - Dyspnoea [None]
